FAERS Safety Report 7135958-3 (Version None)
Quarter: 2010Q4

REPORT INFORMATION
  Report Type: 
  Country: None (occurrence: None)
  Receive Date: 20101204
  Receipt Date: 20101115
  Transmission Date: 20110411
  Serious: Yes (Other)
  Sender: FDA-Public Use
  Company Number: US-BAYER-201041612NA

PATIENT

DRUGS (1)
  1. AVELOX [Suspect]
     Route: 048
     Dates: start: 20101112, end: 20101112

REACTIONS (4)
  - DIZZINESS [None]
  - ERYTHEMA [None]
  - HEART RATE IRREGULAR [None]
  - NAUSEA [None]
